FAERS Safety Report 17698972 (Version 2)
Quarter: 2020Q3

REPORT INFORMATION
  Report Type: Spontaneous
  Country: AR (occurrence: AR)
  Receive Date: 20200423
  Receipt Date: 20200710
  Transmission Date: 20201102
  Serious: Yes (Other)
  Sender: FDA-Public Use
  Company Number: AR-PFIZER INC-2020162830

PATIENT
  Age: 80 Year
  Sex: Female

DRUGS (2)
  1. IBRANCE [Suspect]
     Active Substance: PALBOCICLIB
     Indication: BREAST CANCER METASTATIC
     Dosage: 100 MG, CYCLIC (DAILY, 3X1 SCHEME)
     Dates: start: 20180604
  2. LETROZOL [Concomitant]
     Active Substance: LETROZOLE

REACTIONS (5)
  - Malaise [Unknown]
  - Tremor [Unknown]
  - Nasopharyngitis [Unknown]
  - Seizure [Unknown]
  - Feeling cold [Unknown]
